FAERS Safety Report 20681807 (Version 1)
Quarter: 2022Q2

REPORT INFORMATION
  Report Type: Spontaneous
  Country: FR (occurrence: FR)
  Receive Date: 20220407
  Receipt Date: 20220407
  Transmission Date: 20220720
  Serious: Yes (Hospitalization, Other)
  Sender: FDA-Public Use
  Company Number: FR-AFSSAPS-CN20220513

PATIENT
  Age: 23 Year
  Sex: Female
  Weight: 35 kg

DRUGS (8)
  1. OLANZAPINE [Suspect]
     Active Substance: OLANZAPINE
     Indication: Anorexia nervosa
     Dosage: 5 MILLIGRAM, ONCE A DAY
     Route: 048
     Dates: start: 20210203
  2. SERTRALINE [Suspect]
     Active Substance: SERTRALINE HYDROCHLORIDE
     Indication: Anorexia nervosa
     Dosage: 50 MILLIGRAM, ONCE A DAY
     Route: 048
     Dates: start: 20210203
  3. FOLIC ACID [Concomitant]
     Active Substance: FOLIC ACID
     Indication: Malnutrition
     Dosage: 15 MILLIGRAM, ONCE A DAY
     Route: 048
     Dates: start: 20210203
  4. Calcidose [Concomitant]
     Indication: Malnutrition
     Dosage: 2 DOSAGE FORM, ONCE A DAY
     Route: 048
     Dates: start: 20210203
  5. VITAMINS [Concomitant]
     Active Substance: VITAMINS
     Indication: Malnutrition
     Dosage: 25 GTT DROPS, ONCE A DAY
     Route: 048
     Dates: start: 20210203
  6. LOXAPINE [Concomitant]
     Active Substance: LOXAPINE
     Indication: Malnutrition
     Dosage: 10 GTT DROPS, ONCE A DAY
     Route: 048
     Dates: start: 20210203
  7. NIACINAMIDE [Concomitant]
     Active Substance: NIACINAMIDE
     Indication: Malnutrition
     Dosage: 1 DOSAGE FORM, ONCE A DAY
     Route: 048
     Dates: start: 20210203
  8. ZINC GLUCONATE [Concomitant]
     Active Substance: ZINC GLUCONATE
     Indication: Malnutrition
     Dosage: 1 DOSAGE FORM, ONCE A DAY
     Route: 048
     Dates: start: 20210203

REACTIONS (1)
  - Hepatic cytolysis [Recovering/Resolving]

NARRATIVE: CASE EVENT DATE: 20210204
